FAERS Safety Report 18725507 (Version 1)
Quarter: 2021Q1

REPORT INFORMATION
  Report Type: Spontaneous
  Country: PE (occurrence: PE)
  Receive Date: 20210111
  Receipt Date: 20210111
  Transmission Date: 20210419
  Serious: Yes (Other)
  Sender: FDA-Public Use
  Company Number: PE-PFIZER INC-2021010946

PATIENT

DRUGS (2)
  1. XELJANZ XR [Suspect]
     Active Substance: TOFACITINIB CITRATE
     Indication: RHEUMATOID ARTHRITIS
     Dosage: 11 MG, 1X/DAY
  2. METHOTREXATE. [Concomitant]
     Active Substance: METHOTREXATE
     Dosage: 22.5 MG, WEEKLY

REACTIONS (2)
  - Sjogren^s syndrome [Not Recovered/Not Resolved]
  - Keratitis [Not Recovered/Not Resolved]
